FAERS Safety Report 25551718 (Version 2)
Quarter: 2025Q3

REPORT INFORMATION
  Report Type: Spontaneous
  Country: US (occurrence: US)
  Receive Date: 20250714
  Receipt Date: 20250819
  Transmission Date: 20251021
  Serious: No
  Sender: CALLIDITAS THERAPEUTICS AB
  Company Number: US-Calliditas-2025CAL01966

PATIENT
  Age: 51 Year
  Sex: Male

DRUGS (5)
  1. TARPEYO [Suspect]
     Active Substance: BUDESONIDE
     Indication: IgA nephropathy
     Route: 048
     Dates: start: 20241109
  2. ALLOPURINOL [Concomitant]
     Active Substance: ALLOPURINOL
  3. CRESTOR [Concomitant]
     Active Substance: ROSUVASTATIN CALCIUM
  4. LOSARTAN [Concomitant]
     Active Substance: LOSARTAN
  5. VERAPAMIL [Concomitant]
     Active Substance: VERAPAMIL HYDROCHLORIDE

REACTIONS (3)
  - Rash pruritic [Unknown]
  - Rash [Unknown]
  - Urticaria [Unknown]
